FAERS Safety Report 13597129 (Version 2)
Quarter: 2017Q2

REPORT INFORMATION
  Report Type: Spontaneous
  Country: NL (occurrence: NL)
  Receive Date: 20170531
  Receipt Date: 20170602
  Transmission Date: 20170830
  Serious: Yes (Hospitalization)
  Sender: FDA-Public Use
  Company Number: NL-PURDUE-GBR-2017-0045591

PATIENT
  Age: 88 Year
  Sex: Female
  Weight: 153 kg

DRUGS (1)
  1. OXYCONTIN [Suspect]
     Active Substance: OXYCODONE HYDROCHLORIDE
     Indication: STERNAL FRACTURE
     Dosage: 5 MG, BID [2 TIMES PER 1 DAYS 5 MG]
     Route: 065
     Dates: start: 20170420, end: 20170506

REACTIONS (1)
  - Delirium [Recovered/Resolved]

NARRATIVE: CASE EVENT DATE: 20170426
